FAERS Safety Report 7528186-0 (Version None)
Quarter: 2011Q2

REPORT INFORMATION
  Report Type: 
  Country: None (occurrence: None)
  Receive Date: 20110607
  Receipt Date: 20100820
  Transmission Date: 20111010
  Serious: No
  Sender: FDA-Public Use
  Company Number: US-ASTRAZENECA-2010SE39397

PATIENT
  Age: 88 Year
  Sex: Male

DRUGS (2)
  1. PRILOSEC [Suspect]
     Indication: HIATUS HERNIA
     Route: 048
     Dates: start: 19990101
  2. PRILOSEC [Suspect]
     Indication: GASTRIC ULCER
     Route: 048
     Dates: start: 19990101

REACTIONS (2)
  - MUSCULAR WEAKNESS [None]
  - HYPOAESTHESIA [None]
